FAERS Safety Report 9237279 (Version 3)
Quarter: 2013Q2

REPORT INFORMATION
  Report Type: Spontaneous
  Country: DE (occurrence: DE)
  Receive Date: 20130417
  Receipt Date: 20130626
  Transmission Date: 20140414
  Serious: Yes (Death, Hospitalization)
  Sender: FDA-Public Use
  Company Number: DE-VERTEX PHARMACEUTICALS INC.-2013-005033

PATIENT
  Age: 44 Year
  Sex: Female

DRUGS (6)
  1. INCIVO [Suspect]
     Indication: HEPATITIS C
     Dosage: 2250 MG, QD
     Route: 048
     Dates: start: 20121127, end: 20130107
  2. INCIVO [Suspect]
     Indication: HEPATIC CIRRHOSIS
  3. PEGASYS [Concomitant]
     Indication: HEPATIC CIRRHOSIS
     Dosage: DOSAGE FORM: UNSPECIFIED
     Route: 065
     Dates: start: 20121026, end: 20130227
  4. PEGASYS [Concomitant]
     Indication: HEPATITIS C
  5. COPEGUS [Concomitant]
     Indication: HEPATIC CIRRHOSIS
     Dosage: DOSAGE FORM: UNSPECIFIED
     Route: 048
     Dates: start: 20121026, end: 20130314
  6. COPEGUS [Concomitant]
     Indication: HEPATITIS C

REACTIONS (5)
  - Septic shock [Fatal]
  - Abscess [Not Recovered/Not Resolved]
  - Infection [Unknown]
  - Infective spondylitis [Unknown]
  - Staphylococcal osteomyelitis [Unknown]
